FAERS Safety Report 5113829-1 (Version None)
Quarter: 2006Q3

REPORT INFORMATION
  Report Type: 
  Country: None (occurrence: None)
  Receive Date: 20060925
  Receipt Date: 20060915
  Transmission Date: 20061208
  Serious: Yes (Hospitalization)
  Sender: FDA-Public Use
  Company Number: PHNR2006AU01254

PATIENT
  Age: 26 Year
  Sex: Female

DRUGS (1)
  1. VOLTAREN [Suspect]
     Indication: SENSORY DISTURBANCE
     Route: 048
     Dates: start: 20060808, end: 20060808

REACTIONS (9)
  - BLOOD PRESSURE INCREASED [None]
  - CRYING [None]
  - FEELING COLD [None]
  - FLUSHING [None]
  - HEART RATE INCREASED [None]
  - HYPERVENTILATION [None]
  - MUSCLE SPASMS [None]
  - RASH [None]
  - TREMOR [None]
